FAERS Safety Report 11385708 (Version 1)
Quarter: 2015Q3

REPORT INFORMATION
  Report Type: Report from Study
  Country: CN (occurrence: CN)
  Receive Date: 20150817
  Receipt Date: 20150817
  Transmission Date: 20151125
  Serious: Yes (Hospitalization)
  Sender: FDA-Public Use
  Company Number: CN-ROCHE-GNE296998

PATIENT
  Sex: Male
  Weight: 74 kg

DRUGS (1)
  1. RANIBIZUMAB [Suspect]
     Active Substance: RANIBIZUMAB
     Indication: AGE-RELATED MACULAR DEGENERATION
     Dosage: 50 MICROL, 1/MONTH
     Route: 050
     Dates: start: 20090721

REACTIONS (1)
  - Coronary artery disease [Recovering/Resolving]
